FAERS Safety Report 5826466-8 (Version None)
Quarter: 2008Q3

REPORT INFORMATION
  Report Type: 
  Country: None (occurrence: None)
  Receive Date: 20080729
  Receipt Date: 20080714
  Transmission Date: 20090109
  Serious: Yes (Hospitalization)
  Sender: FDA-Public Use
  Company Number: SE-ALLERGAN-0809196US

PATIENT
  Sex: Male

DRUGS (3)
  1. COMBIGAN [Suspect]
     Indication: GLAUCOMA
     Dates: start: 20080213, end: 20080502
  2. BLOCADREN [Suspect]
     Indication: GLAUCOMA
     Dosage: UNK, UNK
     Dates: start: 20080128, end: 20080502
  3. TRAVATAN [Concomitant]

REACTIONS (2)
  - BRADYCARDIA [None]
  - DEPRESSION [None]
